FAERS Safety Report 7292294-2 (Version None)
Quarter: 2011Q1

REPORT INFORMATION
  Report Type: 
  Country: None (occurrence: None)
  Receive Date: 20110215
  Receipt Date: 20101221
  Transmission Date: 20110831
  Serious: Yes (Other)
  Sender: FDA-Public Use
  Company Number: US-BAYER-201029253NA

PATIENT
  Sex: Female

DRUGS (1)
  1. YASMIN [Suspect]
     Indication: CONTRACEPTION
     Route: 048
     Dates: start: 20051101, end: 20090101

REACTIONS (3)
  - POST CHOLECYSTECTOMY SYNDROME [None]
  - ABDOMINAL PAIN [None]
  - CHOLELITHIASIS [None]
